FAERS Safety Report 12574300 (Version 1)
Quarter: 2016Q3

REPORT INFORMATION
  Report Type: Spontaneous
  Country: US (occurrence: US)
  Receive Date: 20160720
  Receipt Date: 20160720
  Transmission Date: 20161109
  Serious: No
  Sender: FDA-Public Use
  Company Number: US-TEVA-671781USA

PATIENT
  Age: 31 Year
  Sex: Male

DRUGS (1)
  1. ZECUITY [Suspect]
     Active Substance: SUMATRIPTAN SUCCINATE
     Indication: MIGRAINE
     Dosage: USED 2 PATCHES ONE MONTH AGO
     Route: 062
     Dates: start: 201605, end: 201605

REACTIONS (6)
  - Application site discomfort [Recovered/Resolved]
  - Application site erythema [Recovered/Resolved]
  - Skin injury [Recovered/Resolved]
  - Product physical issue [Unknown]
  - Drug effect incomplete [Unknown]
  - Application site exfoliation [Recovered/Resolved]

NARRATIVE: CASE EVENT DATE: 201605
